FAERS Safety Report 6836064-5 (Version None)
Quarter: 2010Q3

REPORT INFORMATION
  Report Type: 
  Country: None (occurrence: None)
  Receive Date: 20100713
  Receipt Date: 20100702
  Transmission Date: 20110219
  Serious: Yes (Hospitalization)
  Sender: FDA-Public Use
  Company Number: US-SANOFI-AVENTIS-2010SA038512

PATIENT
  Sex: Male
  Weight: 108.6 kg

DRUGS (22)
  1. TAXOTERE [Suspect]
     Indication: PROSTATE CANCER
     Route: 041
     Dates: start: 20100617, end: 20100617
  2. TAXOTERE [Suspect]
     Route: 041
     Dates: start: 20100429, end: 20100429
  3. BLINDED THERAPY [Suspect]
     Indication: PROSTATE CANCER
     Route: 048
     Dates: start: 20100429
  4. BLINDED THERAPY [Suspect]
     Route: 048
     Dates: start: 20100617, end: 20100629
  5. PREDNISONE [Suspect]
     Indication: PROSTATE CANCER
     Route: 048
     Dates: start: 20100429
  6. PREDNISONE [Suspect]
     Route: 048
     Dates: start: 20100629
  7. DEXAMETHASONE [Suspect]
     Indication: PREMEDICATION
     Dates: start: 20100617
  8. LUPRON [Concomitant]
     Indication: PROSTATE CANCER
     Dates: start: 20060101
  9. LIPITOR [Concomitant]
  10. MYFORTIC [Concomitant]
  11. AMBIEN [Concomitant]
  12. CARVEDILOL [Concomitant]
  13. DARVOCET-N 100 [Concomitant]
  14. HYDRALAZINE HCL [Concomitant]
  15. INSULIN [Concomitant]
  16. LORAZEPAM [Concomitant]
  17. METOLAZONE [Concomitant]
  18. NORCO [Concomitant]
  19. OMEPRAZOLE [Concomitant]
  20. TEMAZEPAM [Concomitant]
  21. TORSEMIDE [Concomitant]
  22. WARFARIN [Concomitant]

REACTIONS (9)
  - ANAEMIA [None]
  - CARDIAC FAILURE CONGESTIVE [None]
  - DYSPNOEA [None]
  - ELECTROCARDIOGRAM QT PROLONGED [None]
  - ELECTROCARDIOGRAM ST SEGMENT DEPRESSION [None]
  - OEDEMA [None]
  - RECTAL HAEMORRHAGE [None]
  - RENAL FAILURE ACUTE [None]
  - VENTRICULAR ARRHYTHMIA [None]
